FAERS Safety Report 15355266 (Version 1)
Quarter: 2018Q3

REPORT INFORMATION
  Report Type: Spontaneous
  Country: US (occurrence: US)
  Receive Date: 20180830
  Receipt Date: 20180830
  Transmission Date: 20181010
  Serious: Yes (Life-Threatening, Hospitalization, Disabling, Other)
  Sender: FDA-Public Use
  Company Number: None

PATIENT
  Sex: Female
  Weight: 99 kg

DRUGS (2)
  1. OTEZLA [Suspect]
     Active Substance: APREMILAST
     Indication: PSORIATIC ARTHROPATHY
     Route: 048
     Dates: start: 20150715, end: 20160616
  2. CELEBREX [Concomitant]
     Active Substance: CELECOXIB

REACTIONS (12)
  - Dysphonia [None]
  - Sinusitis [None]
  - Neuralgia [None]
  - Brain neoplasm [None]
  - Headache [None]
  - Pain [None]
  - Paraesthesia [None]
  - Ear discomfort [None]
  - Asthenia [None]
  - Deafness [None]
  - Dysphagia [None]
  - Nerve compression [None]
